FAERS Safety Report 24099722 (Version 1)
Quarter: 2024Q3

REPORT INFORMATION
  Report Type: Spontaneous
  Country: US (occurrence: US)
  Receive Date: 20240716
  Receipt Date: 20240716
  Transmission Date: 20241016
  Serious: No
  Sender: NOVO NORDISK
  Company Number: US-NOVOPROD-1216720

PATIENT
  Sex: Female

DRUGS (2)
  1. OZEMPIC [Suspect]
     Active Substance: SEMAGLUTIDE
     Indication: Type 2 diabetes mellitus
     Dosage: 0.50MG
     Route: 058
     Dates: start: 20240112, end: 20240506
  2. OZEMPIC [Suspect]
     Active Substance: SEMAGLUTIDE
     Indication: Chronic kidney disease
     Dosage: 0.50MG
     Route: 058

REACTIONS (3)
  - Feeding disorder [Not Recovered/Not Resolved]
  - Abdominal pain upper [Unknown]
  - Nausea [Not Recovered/Not Resolved]
